FAERS Safety Report 22620839 (Version 1)
Quarter: 2023Q2

REPORT INFORMATION
  Report Type: Spontaneous
  Country: EG (occurrence: None)
  Receive Date: 20230620
  Receipt Date: 20230620
  Transmission Date: 20230721
  Serious: Yes (Other)
  Sender: FDA-Public Use
  Company Number: EG-Hikma Pharmaceuticals-EG-H14001-23-02101

PATIENT
  Sex: Female
  Weight: 85 kg

DRUGS (3)
  1. PACLITAXEL [Suspect]
     Active Substance: PACLITAXEL
     Indication: Breast cancer
     Dosage: 80 MG/M2 (123.6 MG)
     Route: 042
     Dates: start: 20230109
  2. PACLITAXEL [Suspect]
     Active Substance: PACLITAXEL
     Dosage: WITH 20% DOSE REDUCTION
     Route: 041
  3. PHESGO [Concomitant]
     Active Substance: HYALURONIDASE-ZZXF\PERTUZUMAB\TRASTUZUMAB
     Indication: Breast cancer
     Dosage: UNKNOWN
     Route: 058
     Dates: start: 20230109

REACTIONS (4)
  - Feeling cold [Recovered/Resolved]
  - Drug hypersensitivity [Recovered/Resolved]
  - Chills [Recovered/Resolved]
  - Bradycardia [Recovered/Resolved]
